FAERS Safety Report 12632186 (Version 2)
Quarter: 2016Q3

REPORT INFORMATION
  Report Type: Spontaneous
  Country: US (occurrence: US)
  Receive Date: 20160808
  Receipt Date: 20160808
  Transmission Date: 20161109
  Serious: No
  Sender: FDA-Public Use
  Company Number: US-BEH-2016062125

PATIENT
  Sex: Female
  Weight: 69 kg

DRUGS (19)
  1. HIZENTRA [Suspect]
     Active Substance: HUMAN IMMUNOGLOBULIN G
     Route: 058
     Dates: start: 20110505
  2. ZYRTEC [Concomitant]
     Active Substance: CETIRIZINE HYDROCHLORIDE
  3. MONTELUKAST [Concomitant]
     Active Substance: MONTELUKAST SODIUM
  4. ATENOLOL. [Concomitant]
     Active Substance: ATENOLOL
  5. FLUOXETINE [Concomitant]
     Active Substance: FLUOXETINE HYDROCHLORIDE
  6. LORATADINE. [Concomitant]
     Active Substance: LORATADINE
  7. HYDROCODONE [Concomitant]
     Active Substance: HYDROCODONE
  8. CENTRUM KIDS [Concomitant]
  9. BENEFIBER [Concomitant]
     Active Substance: STARCH, WHEAT
  10. HIZENTRA [Suspect]
     Active Substance: HUMAN IMMUNOGLOBULIN G
     Indication: IMMUNODEFICIENCY COMMON VARIABLE
     Route: 058
  11. DIPHENHYDRAMINE. [Concomitant]
     Active Substance: DIPHENHYDRAMINE
  12. PATANSE [Concomitant]
  13. TYLENOL [Concomitant]
     Active Substance: ACETAMINOPHEN
  14. EPIPEN [Concomitant]
     Active Substance: EPINEPHRINE
  15. LMX [Concomitant]
     Active Substance: LIDOCAINE
  16. FLONASE [Concomitant]
     Active Substance: FLUTICASONE PROPIONATE
  17. MELOXICAM. [Concomitant]
     Active Substance: MELOXICAM
  18. HIZENTRA [Suspect]
     Active Substance: HUMAN IMMUNOGLOBULIN G
     Route: 058
  19. ZOVIRAX [Concomitant]
     Active Substance: ACYCLOVIR

REACTIONS (1)
  - Sinusitis [Unknown]
